FAERS Safety Report 6942832-1 (Version None)
Quarter: 2010Q3

REPORT INFORMATION
  Report Type: 
  Country: None (occurrence: None)
  Receive Date: 20100824
  Receipt Date: 20100824
  Transmission Date: 20110219
  Serious: Yes (Life-Threatening)
  Sender: FDA-Public Use
  Company Number: None

PATIENT
  Sex: Male
  Weight: 79.3795 kg

DRUGS (1)
  1. LEVOTHYROXINE SODIUM [Suspect]
     Dosage: 1/2 TAB DAILY MOUTH
     Route: 048
     Dates: start: 20100803

REACTIONS (3)
  - BLOOD PRESSURE INCREASED [None]
  - CAROTID PULSE ABNORMAL [None]
  - PALPITATIONS [None]
